FAERS Safety Report 21086630 (Version 4)
Quarter: 2022Q3

REPORT INFORMATION
  Report Type: Report from Study
  Country: FR (occurrence: None)
  Receive Date: 20220715
  Receipt Date: 20220908
  Transmission Date: 20221027
  Serious: Yes (Hospitalization)
  Sender: FDA-Public Use
  Company Number: FR-ROCHE-3135815

PATIENT
  Age: 66 Year
  Sex: Female
  Weight: 56.1 kg

DRUGS (6)
  1. ATEZOLIZUMAB [Suspect]
     Active Substance: ATEZOLIZUMAB
     Indication: Soft tissue sarcoma
     Dosage: LAST ADMINISTRATION BEFORE SAE ON 27/JUN/2022
     Route: 041
     Dates: start: 20220613, end: 20220627
  2. COBIMETINIB [Suspect]
     Active Substance: COBIMETINIB
     Indication: Soft tissue sarcoma
     Dosage: LAST ADMINISTRATION BEFORE SAE ON 01/JUL/2022, EVERY 1 DAY(S) 21 DAYS ON / 7 DAYS OFF.
     Route: 048
     Dates: start: 20220613, end: 20220701
  3. TRAMADOL HYDROCHLORIDE [Concomitant]
     Active Substance: TRAMADOL HYDROCHLORIDE
     Indication: Pain
     Route: 048
  4. AMITRIPTYLINE HYDROCHLORIDE [Concomitant]
     Active Substance: AMITRIPTYLINE HYDROCHLORIDE
     Dosage: 10 DROPS DAILY
     Route: 048
  5. GABAPENTIN [Concomitant]
     Active Substance: GABAPENTIN
  6. LORMETAZEPAM [Concomitant]
     Active Substance: LORMETAZEPAM
     Dosage: 1/2 TABLET DAILY.
     Route: 048

REACTIONS (1)
  - Myocarditis [Recovered/Resolved]

NARRATIVE: CASE EVENT DATE: 20220701
